FAERS Safety Report 10066480 (Version 2)
Quarter: 2014Q2

REPORT INFORMATION
  Report Type: Spontaneous
  Country: US (occurrence: US)
  Receive Date: 20140408
  Receipt Date: 20140422
  Transmission Date: 20141212
  Serious: Yes (Disabling, Other)
  Sender: FDA-Public Use
  Company Number: US-PFIZER INC-2014098147

PATIENT
  Age: 79 Year
  Sex: Male

DRUGS (6)
  1. LEVETIRACETAM [Suspect]
     Indication: CONVULSION
     Dosage: 2000 MG, DAILY
     Route: 048
     Dates: start: 200802
  2. DILANTIN [Suspect]
     Indication: CONVULSION
     Dosage: 300 MG, DAILY
     Route: 048
  3. METFORMIN [Concomitant]
     Route: 065
  4. NORVASC [Concomitant]
     Route: 065
  5. ZOCOR [Concomitant]
     Dosage: UNK
     Route: 065
  6. LOPRESSOR [Concomitant]
     Dosage: UNK
     Route: 065

REACTIONS (5)
  - Walking aid user [Not Recovered/Not Resolved]
  - Memory impairment [Not Recovered/Not Resolved]
  - Condition aggravated [Not Recovered/Not Resolved]
  - Gait disturbance [Not Recovered/Not Resolved]
  - Hypersomnia [Not Recovered/Not Resolved]
